FAERS Safety Report 5007789-1 (Version None)
Quarter: 2006Q2

REPORT INFORMATION
  Report Type: 
  Country: None (occurrence: None)
  Receive Date: 20060522
  Receipt Date: 20060427
  Transmission Date: 20061013
  Serious: Yes (Other)
  Sender: FDA-Public Use
  Company Number: PT-GLAXOSMITHKLINE-B0423074A

PATIENT
  Age: 64 Year
  Sex: Female
  Weight: 54 kg

DRUGS (14)
  1. CEFORTAM [Suspect]
     Indication: INFECTION
     Dosage: 1G PER DAY
     Route: 042
     Dates: start: 20060418, end: 20060427
  2. FOLIC ACID [Concomitant]
     Dosage: 5MG PER DAY
     Route: 048
  3. FLINDIX RETARD [Concomitant]
     Dosage: 20MG TWICE PER DAY
     Route: 048
  4. VITAMIN B COMPLEX CAP [Concomitant]
     Dosage: 1TAB PER DAY
     Route: 048
  5. FUROSEMIDE [Concomitant]
     Dosage: 40MG TWICE PER DAY
     Route: 048
  6. SEVELAMER [Concomitant]
     Dosage: 800MG THREE TIMES PER DAY
     Route: 048
  7. NIFEDIPINE [Concomitant]
     Dosage: 30MG THREE TIMES PER DAY
     Route: 048
  8. TICLOPIDINE [Concomitant]
     Dosage: 250MG TWICE PER DAY
     Route: 048
  9. CINACALCET HYDROCHLORIDE [Concomitant]
     Dosage: 60MG PER DAY
     Route: 048
  10. PANTOPRAZOLE [Concomitant]
     Dosage: 40MG PER DAY
     Route: 048
  11. VALSARTAN [Concomitant]
     Dosage: 160MG PER DAY
     Route: 048
  12. DARBEPOETIN ALFA [Concomitant]
     Dosage: 80MG WEEKLY
     Route: 042
  13. PARICALCITOL [Concomitant]
     Dosage: 5MG THREE TIMES PER WEEK
     Route: 042
  14. FERRIC OXIDE SACCHARATED COMPLEX [Concomitant]
     Dosage: 100MG EVERY TWO WEEKS
     Route: 042

REACTIONS (8)
  - ANXIETY [None]
  - DYSPNOEA [None]
  - HYPERHIDROSIS [None]
  - HYPERSENSITIVITY [None]
  - HYPOTENSION [None]
  - PHARMACEUTICAL PRODUCT COMPLAINT [None]
  - PRURITUS GENERALISED [None]
  - TREMOR [None]
